FAERS Safety Report 4379993-7 (Version None)
Quarter: 2004Q2

REPORT INFORMATION
  Report Type: 
  Country: None (occurrence: None)
  Receive Date: 20040614
  Receipt Date: 20040526
  Transmission Date: 20050107
  Serious: Yes (Death, Hospitalization, Disabling)
  Sender: FDA-Public Use
  Company Number: 8006368

PATIENT
  Age: 66 Year
  Sex: Female
  Weight: 93 kg

DRUGS (17)
  1. KEPPRA [Suspect]
     Indication: EPILEPSY
     Dosage: 500 MG 2/D PO
     Route: 048
     Dates: start: 20040415, end: 20040521
  2. ACETAMINOPHEN [Concomitant]
  3. ALLOPURINOL [Concomitant]
  4. AMLODIPINE [Concomitant]
  5. IREBESARTAN [Concomitant]
  6. FERROUS FUMARATE [Concomitant]
  7. FUROSEMIDE [Concomitant]
  8. METRONIDAZOLE [Concomitant]
  9. RIFAMPIN [Concomitant]
  10. RAMIPRIL [Concomitant]
  11. VANCOMYCIN [Concomitant]
  12. TYLENOL W/ CODEINE NO. 2 [Concomitant]
  13. PHENYTOIN [Concomitant]
  14. MORPHINE [Concomitant]
  15. MEPERIDINE HCL [Concomitant]
  16. CIPROFLOXACIN [Concomitant]
  17. ASA 81 EC [Concomitant]

REACTIONS (14)
  - ABASIA [None]
  - APHAGIA [None]
  - APHASIA [None]
  - COMA [None]
  - GENERAL PHYSICAL HEALTH DETERIORATION [None]
  - GLAUCOMA [None]
  - HYPERKALAEMIA [None]
  - HYPOTHERMIA [None]
  - INSULIN-REQUIRING TYPE II DIABETES MELLITUS [None]
  - NORMOCHROMIC NORMOCYTIC ANAEMIA [None]
  - OEDEMA [None]
  - PLATELET COUNT DECREASED [None]
  - PNEUMONIA [None]
  - RENAL FAILURE [None]
